FAERS Safety Report 5416834-0 (Version None)
Quarter: 2007Q3

REPORT INFORMATION
  Report Type: 
  Country: None (occurrence: None)
  Receive Date: 20070815
  Receipt Date: 20070815
  Transmission Date: 20080115
  Serious: Yes (Hospitalization)
  Sender: FDA-Public Use
  Company Number: None

PATIENT
  Sex: Male
  Weight: 70 kg

DRUGS (7)
  1. IRINOTECAN HCL [Suspect]
     Indication: GLIOBLASTOMA MULTIFORME
     Dosage: 125MG/M2 EVERY 14 DAYS IV
     Route: 042
     Dates: start: 20061228
  2. IRINOTECAN HCL [Suspect]
     Indication: GLIOBLASTOMA MULTIFORME
     Dosage: 125MG/M2 EVERY 14 DAYS IV
     Route: 042
     Dates: start: 20070104
  3. TEMODAR [Suspect]
     Indication: GLIOBLASTOMA MULTIFORME
     Dosage: 200MG/M2 Q DAY X5 PO
     Route: 048
     Dates: start: 20061228
  4. TEMODAR [Suspect]
     Indication: GLIOBLASTOMA MULTIFORME
     Dosage: 200MG/M2 Q DAY X5 PO
     Route: 048
     Dates: start: 20070101
  5. PRILOSEC [Concomitant]
  6. KEPPRA [Concomitant]
  7. DECADRON [Concomitant]

REACTIONS (25)
  - ASPIRATION [None]
  - ASTHENIA [None]
  - BACK PAIN [None]
  - CAECITIS [None]
  - DIARRHOEA [None]
  - ECCHYMOSIS [None]
  - ESCHERICHIA SEPSIS [None]
  - FALL [None]
  - GASTROINTESTINAL INFECTION [None]
  - HAEMODYNAMIC INSTABILITY [None]
  - HYPERGLYCAEMIA [None]
  - ILEUS [None]
  - JUGULAR VEIN THROMBOSIS [None]
  - LUNG DISORDER [None]
  - MUSCULAR WEAKNESS [None]
  - NEUTROPENIA [None]
  - PANCYTOPENIA [None]
  - PULMONARY EMBOLISM [None]
  - PULMONARY OEDEMA [None]
  - RESPIRATORY DISORDER [None]
  - SPUTUM CULTURE POSITIVE [None]
  - STAPHYLOCOCCAL INFECTION [None]
  - STREPTOCOCCAL SEPSIS [None]
  - SUBCLAVIAN VEIN THROMBOSIS [None]
  - THROMBOCYTOPENIA [None]
